FAERS Safety Report 7169390-3 (Version None)
Quarter: 2010Q4

REPORT INFORMATION
  Report Type: 
  Country: None (occurrence: None)
  Receive Date: 20101216
  Receipt Date: 20100111
  Transmission Date: 20110411
  Serious: No
  Sender: FDA-Public Use
  Company Number: US-AMGEN-KDL385180

PATIENT

DRUGS (13)
  1. ENBREL [Suspect]
     Dosage: 25 MG, 2 TIMES/WK
     Route: 058
  2. NAPROXEN [Concomitant]
     Dosage: 375 MG, UNK
     Route: 048
  3. HYDROXYCHLOROQUINE SULFATE [Concomitant]
     Dosage: 200 MG, UNK
     Route: 048
  4. METHOTREXATE [Concomitant]
     Dosage: 2.5 MG, UNK
     Route: 048
  5. PREDNISONE [Concomitant]
     Dosage: 2.5 MG, UNK
     Route: 048
  6. HYDROCODONE [Concomitant]
  7. FOLIC ACID [Concomitant]
     Dosage: 1 MG, UNK
     Route: 048
  8. HYDROCHLOROTHIAZIDE [Concomitant]
     Dosage: 12.5 MG, UNK
     Route: 048
  9. OMEPRAZOLE [Concomitant]
     Dosage: 10 MG, UNK
     Route: 048
  10. MULTI-VITAMINS [Concomitant]
     Dosage: UNK UNK, UNK
     Route: 048
  11. TOCOPHEROL CONCENTRATE CAP [Concomitant]
     Dosage: UNK UNK, UNK
  12. ASCORBIC ACID [Concomitant]
  13. ERGOCALCIFEROL [Concomitant]

REACTIONS (1)
  - HEADACHE [None]
